FAERS Safety Report 12681945 (Version 1)
Quarter: 2016Q3

REPORT INFORMATION
  Report Type: Spontaneous
  Country: US (occurrence: US)
  Receive Date: 20160824
  Receipt Date: 20160824
  Transmission Date: 20161109
  Serious: Yes (Other)
  Sender: FDA-Public Use
  Company Number: US-TEVA-686076USA

PATIENT
  Age: 53 Year
  Sex: Female

DRUGS (5)
  1. ALBUTEROL. [Suspect]
     Active Substance: ALBUTEROL
     Route: 065
     Dates: start: 2016, end: 20160718
  2. REXULTI [Suspect]
     Active Substance: BREXPIPRAZOLE
     Route: 065
     Dates: start: 2016
  3. TEXAPRA [Concomitant]
  4. REXULTI [Suspect]
     Active Substance: BREXPIPRAZOLE
     Indication: MAJOR DEPRESSION
     Route: 065
     Dates: start: 2016
  5. ATIVAN [Concomitant]
     Active Substance: LORAZEPAM

REACTIONS (6)
  - Vomiting [Recovered/Resolved]
  - Hypersensitivity [Recovered/Resolved]
  - Nausea [Recovered/Resolved]
  - Pharyngeal oedema [Recovered/Resolved]
  - Urticaria [Recovered/Resolved]
  - Hallucination [Recovered/Resolved]
